FAERS Safety Report 20945882 (Version 1)
Quarter: 2022Q2

REPORT INFORMATION
  Report Type: Spontaneous
  Country: US (occurrence: US)
  Receive Date: 20220610
  Receipt Date: 20220610
  Transmission Date: 20220720
  Serious: No
  Sender: FDA-Public Use
  Company Number: US-PFIZER INC-202200815609

PATIENT
  Age: 65 Year
  Sex: Female
  Weight: 108.86 kg

DRUGS (3)
  1. SPIRONOLACTONE [Suspect]
     Active Substance: SPIRONOLACTONE
     Indication: Atrial fibrillation
     Dosage: 100 MG, 1X/DAY (ONCE DAILY BY MOUTH.)
     Route: 048
     Dates: start: 2011
  2. FUROSEMIDE [Suspect]
     Active Substance: FUROSEMIDE
     Indication: Cardiac failure congestive
     Dosage: 120 MG (80 MG. TAKING 120MG . TAKE 1.5 TABLET IN THE MORNING AND 6 HOURS LATER TAKE 0.5 TABLET)
     Dates: start: 2016
  3. METOPROLOL TARTRATE [Concomitant]
     Active Substance: METOPROLOL TARTRATE
     Indication: Arrhythmia neonatal
     Dosage: 25 MG (1/2 A TABLET IN THE MORNING AND 1/2 AT NIGHT)

REACTIONS (3)
  - Swelling [Unknown]
  - Fluid retention [Unknown]
  - Asthenia [Unknown]
